FAERS Safety Report 14392153 (Version 2)
Quarter: 2018Q1

REPORT INFORMATION
  Report Type: Spontaneous
  Country: DE (occurrence: DE)
  Receive Date: 20180116
  Receipt Date: 20180118
  Transmission Date: 20180509
  Serious: Yes (Other)
  Sender: FDA-Public Use
  Company Number: DE-ROCHE-2052024

PATIENT
  Age: 65 Year
  Sex: Female

DRUGS (2)
  1. HERCEPTIN [Suspect]
     Active Substance: TRASTUZUMAB
     Indication: BREAST CANCER
     Route: 065
  2. MARCUMAR [Interacting]
     Active Substance: PHENPROCOUMON
     Indication: THROMBOSIS
     Route: 065

REACTIONS (3)
  - Hypercoagulation [Unknown]
  - Drug interaction [Unknown]
  - Thrombosis [Unknown]
